FAERS Safety Report 9615971 (Version 2)
Quarter: 2013Q4

REPORT INFORMATION
  Report Type: Spontaneous
  Country: US (occurrence: US)
  Receive Date: 20131011
  Receipt Date: 20131023
  Transmission Date: 20140711
  Serious: No
  Sender: FDA-Public Use
  Company Number: US-BAYER-2013-122954

PATIENT
  Age: 55 Year
  Sex: Male
  Weight: 83.9 kg

DRUGS (2)
  1. ALEVE SMOOTH GELS [Suspect]
     Dosage: 2 DF, PRN
     Route: 048
  2. ALEVE SMOOTH GELS [Suspect]
     Dosage: 4 DF, ONCE
     Route: 048
     Dates: start: 20131007, end: 20131007

REACTIONS (4)
  - Abdominal discomfort [Not Recovered/Not Resolved]
  - Diarrhoea [Not Recovered/Not Resolved]
  - Overdose [None]
  - Abdominal pain [Not Recovered/Not Resolved]
